FAERS Safety Report 16151256 (Version 1)
Quarter: 2019Q2

REPORT INFORMATION
  Report Type: Spontaneous
  Country: US (occurrence: US)
  Receive Date: 20190403
  Receipt Date: 20190403
  Transmission Date: 20190711
  Serious: Yes (Other)
  Sender: FDA-Public Use
  Company Number: US-RECKITT BENCKISER HEALTHCARE INT LIMITED-RB-83532-2019

PATIENT
  Age: 66 Year
  Sex: Female

DRUGS (1)
  1. CHILDRENS MUCINEX MINI-MELTS CHEST CONGESTION [Suspect]
     Active Substance: GUAIFENESIN
     Indication: PRODUCT USED FOR UNKNOWN INDICATION
     Dosage: TOOK 1 TO 2 PACKETS EVERY 4 HOURS
     Route: 048
     Dates: start: 20190321, end: 20190321

REACTIONS (14)
  - Diarrhoea [Recovered/Resolved]
  - Dyspepsia [Recovered/Resolved]
  - Headache [Recovered/Resolved]
  - Dyspnoea [Recovered/Resolved]
  - Eructation [Recovered/Resolved]
  - Oesophageal pain [Recovered/Resolved]
  - Chest discomfort [Recovered/Resolved]
  - Product administered to patient of inappropriate age [Recovered/Resolved]
  - Lung disorder [Recovered/Resolved]
  - Vision blurred [Recovered/Resolved]
  - Hypoaesthesia oral [Recovered/Resolved]
  - Ill-defined disorder [Recovered/Resolved]
  - Dysgeusia [Recovered/Resolved]
  - Throat tightness [Recovered/Resolved]

NARRATIVE: CASE EVENT DATE: 20190321
